FAERS Safety Report 9448857 (Version 1)
Quarter: 2013Q3

REPORT INFORMATION
  Report Type: Spontaneous
  Country: GB (occurrence: None)
  Receive Date: 20130806
  Receipt Date: 20130806
  Transmission Date: 20140515
  Serious: Yes (Hospitalization, Other)
  Sender: FDA-Public Use
  Company Number: HRA-MET20130085

PATIENT
  Age: 65 Year
  Sex: Female

DRUGS (15)
  1. METYRAPONE [Suspect]
     Indication: CUSHING^S SYNDROME
     Dates: start: 20130807
  2. DIPYRIDAMOLE [Concomitant]
  3. LISINOPRIL [Concomitant]
  4. SALBUTAMOL [Concomitant]
  5. FLUTICASONE PROPIONATE [Concomitant]
  6. QUININE SULFATE [Concomitant]
  7. DIHYDROCODEINE [Concomitant]
  8. SIMVASTATIN [Concomitant]
  9. SPIRONOLACTONE [Concomitant]
  10. BUMETANIDE [Concomitant]
  11. KETOCONAZOLE [Concomitant]
  12. AMLODIPINE [Concomitant]
  13. ESCITALOPRAM [Concomitant]
  14. GILCLAZIDE [Concomitant]
  15. AMOXICLLIN [Concomitant]

REACTIONS (4)
  - Dizziness [None]
  - Diarrhoea [None]
  - Nausea [None]
  - Retching [None]
